FAERS Safety Report 17660557 (Version 1)
Quarter: 2020Q2

REPORT INFORMATION
  Report Type: Spontaneous
  Country: GB (occurrence: GB)
  Receive Date: 20200413
  Receipt Date: 20200413
  Transmission Date: 20200713
  Serious: Yes (Hospitalization)
  Sender: FDA-Public Use
  Company Number: GB-PFIZER INC-2020146921

PATIENT
  Age: 24 Year
  Sex: Female

DRUGS (4)
  1. DORNASE ALFA. [Suspect]
     Active Substance: DORNASE ALFA
     Dosage: UNK
  2. WATER FOR INJECTION [Suspect]
     Active Substance: WATER
     Dosage: UNK
  3. PROMIXIN [COLISTIMETHATE SODIUM] [Suspect]
     Active Substance: COLISTIMETHATE SODIUM
     Dosage: UNK
  4. TOBRAMYCIN. [Suspect]
     Active Substance: TOBRAMYCIN
     Dosage: UNK

REACTIONS (1)
  - Malaise [Unknown]

NARRATIVE: CASE EVENT DATE: 2020
